FAERS Safety Report 14512166 (Version 11)
Quarter: 2019Q1

REPORT INFORMATION
  Report Type: Report from Study
  Country: US (occurrence: US)
  Receive Date: 20180209
  Receipt Date: 20190319
  Transmission Date: 20190417
  Serious: Yes (Other)
  Sender: FDA-Public Use
  Company Number: US-MALLINCKRODT-T201800135

PATIENT
  Age: 66 Year
  Sex: Male

DRUGS (5)
  1. REPOSITORY CORTICOTROPIN INJECTION [Suspect]
     Active Substance: CORTICOTROPIN
     Indication: PROTEINURIA
     Dosage: 80 UNITS / 1 ML, 2 TIMES PER WEEK (WEDNESDAY AND SUNDAY)
     Route: 058
     Dates: start: 20180103, end: 2018
  2. REPOSITORY CORTICOTROPIN INJECTION [Suspect]
     Active Substance: CORTICOTROPIN
     Dosage: 80 UNITS / 1 ML 2 TIMES PER WEEK  WEDNESDAYS AND SUNDAYS
     Route: 058
     Dates: start: 2018, end: 2018
  3. REPOSITORY CORTICOTROPIN INJECTION [Suspect]
     Active Substance: CORTICOTROPIN
     Dosage: 80 UNITS/1 ML 2 TIMES PER WEEK  TUESDAY/THURSDAY
     Route: 058
     Dates: start: 2018, end: 2018
  4. REPOSITORY CORTICOTROPIN INJECTION [Suspect]
     Active Substance: CORTICOTROPIN
     Indication: NEPHROTIC SYNDROME
     Dosage: 80 UNITS / 1 ML 2 TIMES PER WEEK WEDNESDAYS AND SUNDAYS
     Route: 058
     Dates: start: 2018, end: 2018
  5. REPOSITORY CORTICOTROPIN INJECTION [Suspect]
     Active Substance: CORTICOTROPIN
     Dosage: 80 UNITS/1 ML 2 TIMES PER WEEK  TUESDAY/SATURDAY
     Route: 058
     Dates: end: 20190304

REACTIONS (14)
  - Injection site pruritus [Unknown]
  - Contusion [Recovering/Resolving]
  - Anaemia [Unknown]
  - Diarrhoea [Not Recovered/Not Resolved]
  - Vascular device infection [Unknown]
  - Eye haemorrhage [Unknown]
  - Gout [Unknown]
  - Blood urea nitrogen/creatinine ratio increased [Unknown]
  - Dialysis [Unknown]
  - Weight decreased [Unknown]
  - Skin laceration [Unknown]
  - Testicular haemorrhage [Recovering/Resolving]
  - Blood potassium increased [Unknown]
  - Incontinence [Unknown]

NARRATIVE: CASE EVENT DATE: 201809
